FAERS Safety Report 15362447 (Version 1)
Quarter: 2018Q3

REPORT INFORMATION
  Report Type: Spontaneous
  Country: US (occurrence: US)
  Receive Date: 20180907
  Receipt Date: 20180907
  Transmission Date: 20181010
  Serious: No
  Sender: FDA-Public Use
  Company Number: US-PFIZER INC-2018359814

PATIENT
  Age: 68 Year
  Sex: Female
  Weight: 43 kg

DRUGS (1)
  1. IBRANCE [Suspect]
     Active Substance: PALBOCICLIB
     Indication: BREAST CANCER METASTATIC
     Dosage: UNK, CYCLIC, (FOR 21 DAYS, THEN OFF FOR 7 DAYS)
     Dates: start: 201806

REACTIONS (2)
  - Full blood count decreased [Recovering/Resolving]
  - Tumour marker abnormal [Recovering/Resolving]

NARRATIVE: CASE EVENT DATE: 201807
